FAERS Safety Report 7833165-X (Version None)
Quarter: 2011Q4

REPORT INFORMATION
  Report Type: 
  Country: None (occurrence: None)
  Receive Date: 20111024
  Receipt Date: 20111017
  Transmission Date: 20120403
  Serious: Yes (Other)
  Sender: FDA-Public Use
  Company Number: US-JNJFOC-20111008372

PATIENT
  Age: 10 Year
  Sex: Male
  Weight: 49.9 kg

DRUGS (2)
  1. CONCERTA [Suspect]
     Indication: ATTENTION DEFICIT/HYPERACTIVITY DISORDER
     Route: 048
     Dates: start: 20110901, end: 20110901
  2. CONCERTA [Suspect]
     Route: 048
     Dates: start: 20111001

REACTIONS (5)
  - MUSCLE TWITCHING [None]
  - DRUG INEFFECTIVE [None]
  - WITHDRAWAL SYNDROME [None]
  - MEDICATION ERROR [None]
  - ANGER [None]
